FAERS Safety Report 9188787 (Version 1)
Quarter: 2013Q1

REPORT INFORMATION
  Report Type: Report from Study
  Country: US (occurrence: US)
  Receive Date: 20130326
  Receipt Date: 20130326
  Transmission Date: 20140127
  Serious: Yes (Other)
  Sender: FDA-Public Use
  Company Number: US-US-EMD SERONO, INC.-7200502

PATIENT
  Sex: Female

DRUGS (2)
  1. REBIF [Suspect]
     Indication: PRODUCT USED FOR UNKNOWN INDICATION
     Route: 058
     Dates: start: 20110426
  2. IBUPROFEN [Concomitant]
     Indication: PREMEDICATION

REACTIONS (6)
  - Joint dislocation [Not Recovered/Not Resolved]
  - Ligament rupture [Not Recovered/Not Resolved]
  - Fall [Unknown]
  - Glucose tolerance impaired [Not Recovered/Not Resolved]
  - Injection site necrosis [Unknown]
  - Injection site pain [Unknown]
